FAERS Safety Report 15674694 (Version 1)
Quarter: 2018Q4

REPORT INFORMATION
  Report Type: Spontaneous
  Country: NL (occurrence: NL)
  Receive Date: 20181130
  Receipt Date: 20181130
  Transmission Date: 20190205
  Serious: Yes (Other)
  Sender: FDA-Public Use
  Company Number: NL-BAXTER-2018BAX028744

PATIENT
  Age: 54 Year
  Sex: Female
  Weight: 66 kg

DRUGS (1)
  1. UROMITEXAN, OPLOSSING VOOR INJECTIE 100 MG/ML [Suspect]
     Active Substance: MESNA
     Indication: PROPHYLAXIS
     Route: 042
     Dates: start: 20181116, end: 20181116

REACTIONS (3)
  - Administration site extravasation [Recovered/Resolved]
  - Contusion [Recovering/Resolving]
  - Skin hypertrophy [Recovering/Resolving]

NARRATIVE: CASE EVENT DATE: 20181116
